FAERS Safety Report 8302063-X (Version None)
Quarter: 2012Q2

REPORT INFORMATION
  Report Type: 
  Country: None (occurrence: None)
  Receive Date: 20120420
  Receipt Date: 20120416
  Transmission Date: 20120825
  Serious: Yes (Hospitalization, Disabling)
  Sender: FDA-Public Use
  Company Number: US-MERCK-1110USA01562

PATIENT
  Age: 59 Year
  Sex: Female

DRUGS (2)
  1. FOSAMAX [Suspect]
     Indication: BONE LOSS
     Route: 048
     Dates: start: 20000101
  2. FOSAMAX [Suspect]
     Indication: OSTEOPOROSIS
     Route: 048
     Dates: start: 20000101

REACTIONS (14)
  - ARTHRALGIA [None]
  - TOOTH DISORDER [None]
  - GASTROOESOPHAGEAL REFLUX DISEASE [None]
  - DEPRESSION [None]
  - ANXIETY [None]
  - MUSCULOSKELETAL PAIN [None]
  - FEMUR FRACTURE [None]
  - VITAMIN D DEFICIENCY [None]
  - FALL [None]
  - PAIN IN EXTREMITY [None]
  - IMPAIRED HEALING [None]
  - HYPERTENSION [None]
  - HYPOTHYROIDISM [None]
  - HYPERCHOLESTEROLAEMIA [None]
